FAERS Safety Report 23680594 (Version 1)
Quarter: 2024Q1

REPORT INFORMATION
  Report Type: Spontaneous
  Country: US (occurrence: US)
  Receive Date: 20240328
  Receipt Date: 20240328
  Transmission Date: 20240409
  Serious: Yes (Other)
  Sender: FDA-Public Use
  Company Number: US-AMNEAL-2024-AMRX-00897

PATIENT
  Sex: Male
  Weight: 84.807 kg

DRUGS (2)
  1. BACLOFEN [Suspect]
     Active Substance: BACLOFEN
     Indication: Product used for unknown indication
     Dosage: 122 MICROGRAM A DAY BEFORE
     Route: 037
  2. BACLOFEN [Suspect]
     Active Substance: BACLOFEN
     Dosage: 75 MICROGRAM A DAY
     Route: 037

REACTIONS (3)
  - Musculoskeletal stiffness [Recovered/Resolved]
  - Implant site extravasation [Recovered/Resolved]
  - Complication associated with device [Unknown]
